FAERS Safety Report 22113762 (Version 1)
Quarter: 2023Q1

REPORT INFORMATION
  Report Type: Spontaneous
  Country: ES (occurrence: ES)
  Receive Date: 20230320
  Receipt Date: 20230320
  Transmission Date: 20230418
  Serious: Yes (Other)
  Sender: FDA-Public Use
  Company Number: None

PATIENT
  Age: 89 Year
  Sex: Female

DRUGS (11)
  1. PRADAXA [Suspect]
     Active Substance: DABIGATRAN ETEXILATE MESYLATE
     Indication: Atrial fibrillation
     Route: 048
     Dates: start: 20230202
  2. SIMVASTATIN [Concomitant]
     Active Substance: SIMVASTATIN
     Indication: Hyperlipidaemia
     Dosage: 20.0 MG CE
     Route: 048
     Dates: start: 20160930
  3. OMEPRAZOL PENSA 20 mg CAPSULAS DURAS GASTRORRESISTENTES EFG [Concomitant]
     Indication: Type 2 diabetes mellitus
     Dosage: 20.0 MG DECE
     Route: 048
     Dates: start: 20160915
  4. METFORMINA CINFA 850 mg COMPRIMIDOS RECUBIERTOS CON PELICULA [Concomitant]
     Indication: Type 2 diabetes mellitus
     Dosage: 425.0 MG DECE
     Route: 048
     Dates: start: 20150930
  5. DEPRAX 100 MG COMPRIMIDOS RECUBIERTOS CON PELICULA EFG [Concomitant]
     Indication: Insomnia
     Dosage: 100.0 MG C/24 H NOC
     Route: 048
     Dates: start: 20230215
  6. PARACETAMOL SANDOZ FARMACEUTICA 1 G COMPRIMIDOS EFG 40 comprimidos [Concomitant]
     Indication: Spinal fracture
     Dosage: 1.0 G DECOCE
     Route: 048
     Dates: start: 20181016
  7. CALODIS 1000 mg/880 UI COMPRIMIDOS EFERVESCENTES [Concomitant]
     Indication: Osteoporosis
     Dosage: 1.0 TABLET C/24 H
     Route: 048
     Dates: start: 20170523
  8. PROLIA 60 mg SOLUCION INYECTABLE EN JERINGA PRECARGADA, [Concomitant]
     Indication: Spinal fracture
     Route: 058
     Dates: start: 20190503
  9. BISOPROLOL CINFA 2,5 MG COMPRIMIDOS EFG , 28 comprimidos [Concomitant]
     Indication: Atrial fibrillation
     Dosage: 2.5 MG DE
     Route: 048
     Dates: start: 20230214
  10. FUROSEMIDE [Concomitant]
     Active Substance: FUROSEMIDE
     Indication: Left ventricular failure
     Dosage: 40.0 MG DECO
     Route: 048
     Dates: start: 20230214
  11. DELTIUS 25.000 UI CAPSULAS DURAS, 4 c?psulas [Concomitant]
     Indication: Osteoporosis
     Dosage: 25000.0 UI C/30 DIAS
     Route: 048
     Dates: start: 20200121

REACTIONS (1)
  - Cutaneous vasculitis [Not Recovered/Not Resolved]

NARRATIVE: CASE EVENT DATE: 20230228
